FAERS Safety Report 6084224-6 (Version None)
Quarter: 2009Q1

REPORT INFORMATION
  Report Type: 
  Country: None (occurrence: None)
  Receive Date: 20090219
  Receipt Date: 20090209
  Transmission Date: 20090719
  Serious: Yes (Hospitalization)
  Sender: FDA-Public Use
  Company Number: JP-ROCHE-533045

PATIENT
  Sex: Male
  Weight: 52.3 kg

DRUGS (8)
  1. METHOXY POLYETHYLENE GLYCOL-EPOETIN BETA [Suspect]
     Indication: NEPHROGENIC ANAEMIA
     Route: 042
     Dates: start: 20070522
  2. METHOXY POLYETHYLENE GLYCOL-EPOETIN BETA [Suspect]
     Route: 042
     Dates: start: 20071106, end: 20071106
  3. BLOPRESS [Concomitant]
     Route: 048
  4. AMLODIN [Concomitant]
     Route: 048
  5. LASIX [Concomitant]
     Route: 048
  6. ZYLORIC [Concomitant]
     Route: 048
  7. TAKEPRON [Concomitant]
     Route: 048
     Dates: start: 20070605
  8. 1 CONCOMITANT DRUG [Concomitant]
     Dosage: DRUG REPORTED AS : DIGESTIVE.

REACTIONS (1)
  - RENAL FAILURE ACUTE [None]
